FAERS Safety Report 5837629-X (Version None)
Quarter: 2008Q3

REPORT INFORMATION
  Report Type: 
  Country: None (occurrence: None)
  Receive Date: 20080807
  Receipt Date: 20080729
  Transmission Date: 20090109
  Serious: Yes (Other)
  Sender: FDA-Public Use
  Company Number: PHEH2008US06802

PATIENT
  Sex: Female

DRUGS (2)
  1. FEMARA [Suspect]
     Dosage: 25 MG, QD
     Route: 048
  2. PROZAC [Concomitant]

REACTIONS (1)
  - NEUROPATHY PERIPHERAL [None]
